FAERS Safety Report 6971391-2 (Version None)
Quarter: 2010Q3

REPORT INFORMATION
  Report Type: 
  Country: None (occurrence: None)
  Receive Date: 20100903
  Receipt Date: 20100824
  Transmission Date: 20110219
  Serious: Yes (Hospitalization)
  Sender: FDA-Public Use
  Company Number: 681977

PATIENT
  Age: 47 Year
  Sex: Male

DRUGS (3)
  1. OXALIPLATIN [Suspect]
     Indication: RECTAL CANCER METASTATIC
  2. CAPECITABINE [Concomitant]
  3. BEVACIZUMAB [Concomitant]

REACTIONS (1)
  - ORGANISING PNEUMONIA [None]
